FAERS Safety Report 12528772 (Version 4)
Quarter: 2017Q1

REPORT INFORMATION
  Report Type: Spontaneous
  Country: IL (occurrence: IL)
  Receive Date: 20160705
  Receipt Date: 20170109
  Transmission Date: 20170428
  Serious: Yes (Hospitalization, Other)
  Sender: FDA-Public Use
  Company Number: IL-SA-2015SA052472

PATIENT
  Age: 66 Year
  Sex: Male
  Weight: 90 kg

DRUGS (16)
  1. PLAVIX [Suspect]
     Active Substance: CLOPIDOGREL BISULFATE
     Route: 048
     Dates: start: 20150408, end: 20150408
  2. DEPALEPT [Concomitant]
     Active Substance: VALPROIC ACID
     Route: 048
     Dates: start: 20140805
  3. CRESTOR [Concomitant]
     Active Substance: ROSUVASTATIN CALCIUM
     Route: 048
  4. SPIRONOLACTONE. [Concomitant]
     Active Substance: SPIRONOLACTONE
     Indication: HYPERTENSION
     Route: 048
     Dates: start: 2011, end: 20150408
  5. OMEPRADEX [Concomitant]
     Active Substance: OMEPRAZOLE
     Indication: PROPHYLAXIS
     Route: 048
     Dates: start: 2003, end: 20150407
  6. MAGNESIUM [Concomitant]
     Active Substance: MAGNESIUM
     Indication: PROPHYLAXIS
     Route: 048
     Dates: start: 20130913
  7. TARGIN [Concomitant]
     Active Substance: NALOXONE HYDROCHLORIDE\OXYCODONE HYDROCHLORIDE
     Dosage: TOTAL DAILY DOSE: 10/5 MG
     Route: 048
     Dates: start: 20150308, end: 20150408
  8. TARGIN [Concomitant]
     Active Substance: NALOXONE HYDROCHLORIDE\OXYCODONE HYDROCHLORIDE
     Dosage: TOTAL DAILY DOSE: 10/5 MG
     Route: 048
     Dates: start: 20150409, end: 20150416
  9. TRITACE [Concomitant]
     Active Substance: RAMIPRIL
     Route: 048
  10. FENOFIBRATE. [Concomitant]
     Active Substance: FENOFIBRATE
     Route: 048
     Dates: start: 20140529
  11. ASPIRIN. [Concomitant]
     Active Substance: ASPIRIN
     Indication: CARDIOVASCULAR DISORDER
     Route: 048
     Dates: start: 1998, end: 20150407
  12. PLAVIX [Suspect]
     Active Substance: CLOPIDOGREL BISULFATE
     Route: 048
     Dates: start: 20150409, end: 20150416
  13. SLOW DERALIN [Concomitant]
     Indication: HYPERTENSION
     Route: 048
     Dates: start: 2003
  14. RAFASSAL [Concomitant]
     Route: 054
     Dates: start: 1990, end: 20150407
  15. DISOTHIAZIDE [Concomitant]
     Active Substance: HYDROCHLOROTHIAZIDE
     Route: 048
  16. VITAMIN D [Concomitant]
     Active Substance: CHOLECALCIFEROL
     Route: 048
     Dates: start: 20130729

REACTIONS (7)
  - Ear infection [Recovered/Resolved]
  - Depression [Recovering/Resolving]
  - Blood pressure fluctuation [Recovered/Resolved]
  - Confusional state [Recovered/Resolved]
  - Thrombocytopenia [Unknown]
  - Rash [Recovered/Resolved]
  - Carotid arteriosclerosis [Recovering/Resolving]

NARRATIVE: CASE EVENT DATE: 20150408
